FAERS Safety Report 20143819 (Version 1)
Quarter: 2021Q4

REPORT INFORMATION
  Report Type: Spontaneous
  Country: FR (occurrence: FR)
  Receive Date: 20211203
  Receipt Date: 20211203
  Transmission Date: 20220304
  Serious: Yes (Other)
  Sender: FDA-Public Use
  Company Number: FR-ABBVIE-21K-056-4183870-00

PATIENT
  Sex: Female

DRUGS (9)
  1. VALPROATE SODIUM [Suspect]
     Active Substance: VALPROATE SODIUM
     Indication: Myoclonic epilepsy
     Dosage: HALF A TABLET IN THE MORNING AND IN THE EVENING
     Route: 065
     Dates: start: 199410
  2. RIVOTRIL [Suspect]
     Active Substance: CLONAZEPAM
     Indication: Myoclonic epilepsy
     Dosage: ONE TABLET IN THE MORNING AND IN THE EVENING
     Route: 065
     Dates: start: 199410
  3. TEGRETOL [Suspect]
     Active Substance: CARBAMAZEPINE
     Indication: Product used for unknown indication
     Route: 065
  4. SABRIL [Suspect]
     Active Substance: VIGABATRIN
     Indication: Product used for unknown indication
     Route: 065
  5. PAROXETINE HYDROCHLORIDE [Suspect]
     Active Substance: PAROXETINE HYDROCHLORIDE
     Indication: Product used for unknown indication
     Route: 065
  6. TRANXENE [Suspect]
     Active Substance: CLORAZEPATE DIPOTASSIUM
     Indication: Product used for unknown indication
     Dosage: THREE TABLETS PER DAY
     Route: 065
  7. FLUNITRAZEPAM [Suspect]
     Active Substance: FLUNITRAZEPAM
     Indication: Product used for unknown indication
     Route: 065
  8. KEPPRA [Suspect]
     Active Substance: LEVETIRACETAM
     Indication: Product used for unknown indication
     Route: 065
     Dates: start: 201407
  9. VALIUM [Suspect]
     Active Substance: DIAZEPAM
     Indication: Product used for unknown indication
     Route: 065

REACTIONS (10)
  - Seizure [Unknown]
  - Mental disorder [Unknown]
  - Depression [Unknown]
  - Decreased appetite [Unknown]
  - Juvenile myoclonic epilepsy [Unknown]
  - Headache [Unknown]
  - Depression [Unknown]
  - Maternal exposure during pregnancy [Unknown]
  - Cognitive disorder [Unknown]
  - Nervous system disorder [Unknown]

NARRATIVE: CASE EVENT DATE: 20121126
